FAERS Safety Report 5939580-3 (Version None)
Quarter: 2008Q4

REPORT INFORMATION
  Report Type: 
  Country: None (occurrence: None)
  Receive Date: 20081030
  Receipt Date: 20081017
  Transmission Date: 20090506
  Serious: Yes (Other)
  Sender: FDA-Public Use
  Company Number: DSU-2008-01708

PATIENT
  Age: 61 Year
  Sex: Female
  Weight: 190.5108 kg

DRUGS (1)
  1. WELCHOL [Suspect]
     Indication: HYPERLIPIDAEMIA
     Dosage: 3750 MG (1875 MG,BID), PER ORAL
     Route: 048
     Dates: start: 20080901

REACTIONS (1)
  - GASTRIC ULCER [None]
